FAERS Safety Report 4621043-9 (Version None)
Quarter: 2005Q1

REPORT INFORMATION
  Report Type: 
  Country: None (occurrence: None)
  Receive Date: 20050325
  Receipt Date: 20050309
  Transmission Date: 20050727
  Serious: Yes (Hospitalization)
  Sender: FDA-Public Use
  Company Number: 204400

PATIENT
  Age: 52 Year
  Sex: Male
  Weight: 99 kg

DRUGS (4)
  1. AVONEX [Suspect]
     Indication: MULTIPLE SCLEROSIS
     Dosage: 30 UG;QW;IM
     Route: 030
     Dates: start: 19971101, end: 20040716
  2. NATALIZUMAB [Concomitant]
  3. CIPROFLOXACIN [Concomitant]
  4. BACTRIMEL [Concomitant]

REACTIONS (12)
  - ACCELERATED HYPERTENSION [None]
  - BLOOD CHOLESTEROL INCREASED [None]
  - BLOOD LACTATE DEHYDROGENASE INCREASED [None]
  - BLOOD SODIUM INCREASED [None]
  - BLOOD TRIGLYCERIDES INCREASED [None]
  - GLOMERULONEPHRITIS MINIMAL LESION [None]
  - HAEMOGLOBIN DECREASED [None]
  - HYPERLIPIDAEMIA [None]
  - LOW DENSITY LIPOPROTEIN INCREASED [None]
  - NEPHROTIC SYNDROME [None]
  - PYELONEPHRITIS [None]
  - REFUSAL OF TREATMENT BY PATIENT [None]
